FAERS Safety Report 6046099-0 (Version None)
Quarter: 2009Q1

REPORT INFORMATION
  Report Type: 
  Country: None (occurrence: None)
  Receive Date: 20090121
  Receipt Date: 20090121
  Transmission Date: 20090719
  Serious: Yes (Other)
  Sender: FDA-Public Use
  Company Number: None

PATIENT
  Age: 60 Year
  Sex: Female

DRUGS (1)
  1. ALENDRONATE 70MG [Suspect]
     Indication: OSTEOPOROSIS
     Dosage: 70MG PO Q WEEK
     Route: 048
     Dates: start: 20080801, end: 20080901

REACTIONS (4)
  - ORAL DISCOMFORT [None]
  - PARAESTHESIA ORAL [None]
  - PRODUCT QUALITY ISSUE [None]
  - TONGUE DISORDER [None]
